FAERS Safety Report 4451565-5 (Version None)
Quarter: 2004Q3

REPORT INFORMATION
  Report Type: 
  Country: None (occurrence: None)
  Receive Date: 20040915
  Receipt Date: 20040830
  Transmission Date: 20050211
  Serious: Yes (Other)
  Sender: FDA-Public Use
  Company Number: DSA_24947_2004

PATIENT
  Age: 54 Year
  Sex: Female
  Weight: 63.5036 kg

DRUGS (1)
  1. ATIVAN [Suspect]
     Indication: SLEEP DISORDER
     Dosage: 1 MG Q DAY PO
     Route: 048

REACTIONS (1)
  - MEMORY IMPAIRMENT [None]
